FAERS Safety Report 9056176 (Version 1)
Quarter: 2013Q1

REPORT INFORMATION
  Report Type: Spontaneous
  Country: JP (occurrence: JP)
  Receive Date: 20130205
  Receipt Date: 20130205
  Transmission Date: 20140127
  Serious: Yes (Hospitalization)
  Sender: FDA-Public Use
  Company Number: JP-PFIZER INC-2013038987

PATIENT
  Sex: Male

DRUGS (6)
  1. SOLANAX [Suspect]
     Dosage: 1.6 MG, 1X/DAY
     Route: 048
     Dates: end: 201212
  2. SOLANAX [Suspect]
     Dosage: 1.2 MG, UNK
     Route: 048
     Dates: start: 201212
  3. ALDACTONE A [Suspect]
     Dosage: UNK
     Route: 048
  4. WARFARIN [Suspect]
     Dosage: UNK
     Route: 048
  5. ARTIST [Suspect]
     Dosage: UNK
     Route: 048
  6. VASOLAN [Suspect]
     Dosage: UNK

REACTIONS (8)
  - Peripheral arterial occlusive disease [Unknown]
  - Insomnia [Unknown]
  - Tremor [Unknown]
  - Dizziness [Unknown]
  - Blood creatinine increased [Unknown]
  - Blood urea increased [Unknown]
  - Platelet count decreased [Unknown]
  - Dysuria [Unknown]
